FAERS Safety Report 14422515 (Version 1)
Quarter: 2018Q1

REPORT INFORMATION
  Report Type: Spontaneous
  Country: US (occurrence: US)
  Receive Date: 20180123
  Receipt Date: 20180123
  Transmission Date: 20180509
  Serious: No
  Sender: FDA-Public Use
  Company Number: US-ENDO PHARMACEUTICALS INC-2017-000423

PATIENT
  Age: 56 Year
  Sex: Male
  Weight: 63.49 kg

DRUGS (6)
  1. OPANA [Concomitant]
     Active Substance: OXYMORPHONE HYDROCHLORIDE
     Indication: PAIN
     Dosage: 10 MG, UP TO 5 TIMES PER DAY
  2. OPANA ER [Suspect]
     Active Substance: OXYMORPHONE HYDROCHLORIDE
     Dosage: 10 MG, DAILY
     Route: 065
     Dates: start: 2016
  3. OPANA ER [Suspect]
     Active Substance: OXYMORPHONE HYDROCHLORIDE
     Dosage: 20 MG, 2 TABLETS A FEW MINUTES APART IN THE MORNING AND ONE 20MG AT NIGHT
     Route: 065
     Dates: start: 2016, end: 2016
  4. OPANA ER [Suspect]
     Active Substance: OXYMORPHONE HYDROCHLORIDE
     Indication: PAIN
     Dosage: 40 MG, BID
     Route: 065
     Dates: start: 2010
  5. OPANA ER [Suspect]
     Active Substance: OXYMORPHONE HYDROCHLORIDE
     Dosage: 20 MG, 2 TABLETS A FEW MINUTES APART AND AT NIGHT
     Route: 065
     Dates: start: 2016, end: 2016
  6. OPANA ER [Suspect]
     Active Substance: OXYMORPHONE HYDROCHLORIDE
     Dosage: 20 MG, DAILY
     Route: 065
     Dates: start: 2016

REACTIONS (4)
  - Inappropriate schedule of drug administration [Unknown]
  - Drug screen positive [Unknown]
  - Nausea [Recovered/Resolved]
  - Unevaluable event [Unknown]

NARRATIVE: CASE EVENT DATE: 2015
